FAERS Safety Report 15323103 (Version 9)
Quarter: 2020Q4

REPORT INFORMATION
  Report Type: Report from Study
  Country: JP (occurrence: JP)
  Receive Date: 20180827
  Receipt Date: 20201021
  Transmission Date: 20210113
  Serious: Yes (Hospitalization)
  Sender: FDA-Public Use
  Company Number: JP-EISAI MEDICAL RESEARCH-EC-2018-044438

PATIENT
  Age: 68 Year
  Sex: Male
  Weight: 51 kg

DRUGS (13)
  1. LENVATINIB [Suspect]
     Active Substance: LENVATINIB
     Route: 048
     Dates: start: 20190806, end: 20200304
  2. PEMBROLIZUMAB. [Suspect]
     Active Substance: PEMBROLIZUMAB
     Indication: RENAL CANCER
     Route: 041
     Dates: start: 20180403, end: 20180830
  3. AZILVA [Concomitant]
     Active Substance: AZILSARTAN KAMEDOXOMIL
  4. LENVATINIB [Suspect]
     Active Substance: LENVATINIB
     Indication: RENAL CANCER
     Route: 048
     Dates: start: 20180403, end: 20180829
  5. PEMBROLIZUMAB. [Suspect]
     Active Substance: PEMBROLIZUMAB
     Route: 041
     Dates: start: 20181011, end: 20200227
  6. ANTEBATE OINTMENT [Concomitant]
     Active Substance: BETAMETHASONE BUTYRATE PROPIONATE
  7. POSTERISAN [Concomitant]
     Active Substance: LIDOCAINE
  8. CONIEL [Concomitant]
     Active Substance: BENIDIPINE HYDROCHLORIDE
  9. KERATINAMIN KOWA [Concomitant]
  10. GEBEN [Concomitant]
     Active Substance: SILVER SULFADIAZINE
  11. LENVATINIB [Suspect]
     Active Substance: LENVATINIB
     Route: 048
     Dates: start: 20180913, end: 20190731
  12. LOXOPROFEN NA [Concomitant]
     Active Substance: LOXOPROFEN SODIUM
  13. AZUNOL GARGLE LIQUID [Concomitant]

REACTIONS (3)
  - Dysgeusia [Recovered/Resolved]
  - Decreased appetite [Recovered/Resolved]
  - Weight decreased [Recovered/Resolved]

NARRATIVE: CASE EVENT DATE: 20180501
